FAERS Safety Report 22014121 (Version 6)
Quarter: 2023Q2

REPORT INFORMATION
  Report Type: Spontaneous
  Country: DE (occurrence: DE)
  Receive Date: 20230221
  Receipt Date: 20230512
  Transmission Date: 20230722
  Serious: Yes (Life-Threatening, Hospitalization)
  Sender: FDA-Public Use
  Company Number: DE-SAMSUNG BIOEPIS-SB-2023-04044

PATIENT
  Age: 74 Year
  Sex: Female
  Weight: 65.3 kg

DRUGS (14)
  1. PERTUZUMAB [Suspect]
     Active Substance: PERTUZUMAB
     Indication: Breast cancer
     Route: 065
     Dates: start: 20221122, end: 20230418
  2. ONTRUZANT [Suspect]
     Active Substance: TRASTUZUMAB-DTTB
     Indication: Breast cancer
     Route: 065
     Dates: start: 20221122, end: 20230418
  3. PACLITAXEL [Suspect]
     Active Substance: PACLITAXEL
     Indication: Breast cancer
     Route: 065
     Dates: start: 20221122, end: 20230202
  4. PACLITAXEL [Suspect]
     Active Substance: PACLITAXEL
     Route: 065
     Dates: start: 20221122, end: 20230418
  5. CARBOPLATIN [Suspect]
     Active Substance: CARBOPLATIN
     Indication: Breast cancer
     Dosage: DOSE: 5 AUC
     Route: 065
     Dates: start: 20221122, end: 20230418
  6. LEVOTHYROXINE [Concomitant]
     Active Substance: LEVOTHYROXINE
     Indication: Hypothyroidism
     Dates: start: 20220115
  7. CHOLECALCIFEROL [Concomitant]
     Active Substance: CHOLECALCIFEROL
     Indication: Supplementation therapy
     Dosage: IE
  8. ATORVASTATIN [Concomitant]
     Active Substance: ATORVASTATIN
     Indication: Hypercholesterolaemia
     Dates: start: 20201215
  9. VITAMIN B COMPLEX [Concomitant]
     Active Substance: CYANOCOBALAMIN\DEXPANTHENOL\NIACINAMIDE\PYRIDOXINE HYDROCHLORIDE\RIBOFLAVIN 5^-PHOSPHATE SODIUM\THIA
     Indication: Supplementation therapy
     Dosage: DOSE: UNKNOWN
     Dates: start: 20070630
  10. CANDESARTAN [Concomitant]
     Active Substance: CANDESARTAN
     Indication: Hypertension
     Dates: start: 20181015
  11. OMEPRAZOLE [Concomitant]
     Active Substance: OMEPRAZOLE
     Indication: Gastrooesophageal reflux disease
     Dosage: FREQUENCY: OTHER
     Dates: start: 20150630
  12. ASPIRIN [Concomitant]
     Active Substance: ASPIRIN
     Indication: Anticoagulant therapy
  13. CANDESARTAN CILEXETIL [Concomitant]
     Active Substance: CANDESARTAN CILEXETIL
     Indication: Hypertension
  14. ASPIRIN [Concomitant]
     Active Substance: ASPIRIN
     Indication: Anticoagulant therapy

REACTIONS (5)
  - General physical health deterioration [Recovering/Resolving]
  - Anaemia [Not Recovered/Not Resolved]
  - Neutropenia [Recovered/Resolved]
  - Hypomagnesaemia [Recovering/Resolving]
  - Thrombocytopenia [Not Recovered/Not Resolved]

NARRATIVE: CASE EVENT DATE: 20230202
